FAERS Safety Report 26165599 (Version 1)
Quarter: 2025Q4

REPORT INFORMATION
  Report Type: Spontaneous
  Country: GB (occurrence: GB)
  Receive Date: 20251216
  Receipt Date: 20251216
  Transmission Date: 20260117
  Serious: Yes (Other)
  Sender: SANDOZ
  Company Number: None

PATIENT
  Age: 66 Year
  Sex: Female

DRUGS (1)
  1. MOMETASONE [Suspect]
     Active Substance: MOMETASONE
     Indication: Upper-airway cough syndrome
     Dosage: 2 SPRAYS EACH NOSTRIL ONCE PD
     Route: 065
     Dates: start: 20251105, end: 20251116

REACTIONS (3)
  - Trigeminal neuralgia [Unknown]
  - Pain in jaw [Recovering/Resolving]
  - Eye pain [Unknown]

NARRATIVE: CASE EVENT DATE: 20251116
